FAERS Safety Report 8095148-7 (Version None)
Quarter: 2012Q1

REPORT INFORMATION
  Report Type: 
  Country: None (occurrence: None)
  Receive Date: 20120129
  Receipt Date: 20111230
  Transmission Date: 20120608
  Serious: No
  Sender: FDA-Public Use
  Company Number: US-ABBOTT-12P-163-0888613-00

PATIENT
  Age: 54 Year
  Sex: Female

DRUGS (5)
  1. IMURAN [Concomitant]
     Indication: CROHN'S DISEASE
  2. PENTASA [Concomitant]
     Indication: CROHN'S DISEASE
  3. PREDNISONE TAB [Concomitant]
     Indication: CROHN'S DISEASE
     Dosage: TAPERING DOSE
  4. MULTI-VITAMIN [Concomitant]
     Indication: PRODUCT USED FOR UNKNOWN INDICATION
  5. HUMIRA [Suspect]
     Indication: CROHN'S DISEASE
     Dates: start: 20111101

REACTIONS (1)
  - INJECTION SITE HAEMORRHAGE [None]
